FAERS Safety Report 22372195 (Version 1)
Quarter: 2023Q2

REPORT INFORMATION
  Report Type: Spontaneous
  Country: CN (occurrence: CN)
  Receive Date: 20230526
  Receipt Date: 20230526
  Transmission Date: 20230721
  Serious: Yes (Life-Threatening, Other)
  Sender: FDA-Public Use
  Company Number: CN-009507513-2305CHN006922

PATIENT
  Age: 80 Year
  Sex: Male

DRUGS (3)
  1. CILASTATIN SODIUM\IMIPENEM [Suspect]
     Active Substance: CILASTATIN SODIUM\IMIPENEM
     Indication: Pneumonia bacterial
     Dosage: 500 MILLIGRAM, Q8H
     Route: 041
     Dates: start: 20230419, end: 20230420
  2. DOXOFYLLINE [Concomitant]
     Active Substance: DOXOFYLLINE
     Indication: Asthma
     Dosage: 0.2 G, BID
     Route: 048
     Dates: start: 20230416, end: 20230420
  3. SODIUM CHLORIDE [Concomitant]
     Active Substance: SODIUM CHLORIDE
     Indication: Medication dilution
     Dosage: 100 MILLILITER, TID
     Route: 041
     Dates: start: 20230419, end: 20230420

REACTIONS (4)
  - Epilepsy [Recovered/Resolved]
  - Oxygen saturation abnormal [Unknown]
  - Rales [Unknown]
  - Productive cough [Unknown]

NARRATIVE: CASE EVENT DATE: 20230420
